FAERS Safety Report 17060691 (Version 2)
Quarter: 2020Q1

REPORT INFORMATION
  Report Type: Spontaneous
  Country: FR (occurrence: FR)
  Receive Date: 20191121
  Receipt Date: 20200110
  Transmission Date: 20200409
  Serious: Yes (Hospitalization, Other)
  Sender: FDA-Public Use
  Company Number: FR-MYLANLABS-2019M1111552

PATIENT
  Sex: Male
  Weight: 3 kg

DRUGS (14)
  1. KINERET [Suspect]
     Active Substance: ANAKINRA
     Indication: PRODUCT USED FOR UNKNOWN INDICATION
     Dosage: UNK
     Route: 064
     Dates: end: 20151008
  2. PREDNISONE. [Suspect]
     Active Substance: PREDNISONE
     Indication: PRODUCT USED FOR UNKNOWN INDICATION
     Dosage: 500 MILLIGRAM
     Route: 064
     Dates: start: 20151128, end: 201511
  3. ROACTEMRA [Suspect]
     Active Substance: TOCILIZUMAB
     Indication: PRODUCT USED FOR UNKNOWN INDICATION
     Dosage: UNK
     Route: 064
     Dates: start: 20151012, end: 20151109
  4. CIMZIA [Suspect]
     Active Substance: CERTOLIZUMAB PEGOL
     Indication: PRODUCT USED FOR UNKNOWN INDICATION
     Dosage: UNK
     Route: 064
     Dates: start: 20151118, end: 201511
  5. UN-ALFA [Concomitant]
     Active Substance: ALFACALCIDOL
     Indication: HYPOCALCAEMIA
     Dosage: UNK
     Route: 065
  6. ACICLOVIR [Concomitant]
     Active Substance: ACYCLOVIR
     Indication: PROPHYLAXIS AGAINST HIV INFECTION
     Dosage: UNK
     Route: 064
  7. KINERET [Suspect]
     Active Substance: ANAKINRA
     Dosage: UNK
     Route: 064
     Dates: start: 2015, end: 20151104
  8. PREDNISONE. [Suspect]
     Active Substance: PREDNISONE
     Dosage: DOSE: 500 MG
     Route: 064
     Dates: start: 2015, end: 20151117
  9. PERFALGAN [Suspect]
     Active Substance: ACETAMINOPHEN
     Indication: PRODUCT USED FOR UNKNOWN INDICATION
     Dosage: UNK
     Route: 064
     Dates: start: 20151129, end: 201511
  10. HUMAN IMMUNOGLOBULIN (IMMUNOGLOBULIN HUMAN NORMAL) [Suspect]
     Active Substance: HUMAN IMMUNOGLOBULIN G
     Indication: PRODUCT USED FOR UNKNOWN INDICATION
     Dosage: UNK
     Route: 064
     Dates: start: 20151128, end: 20151128
  11. HUMAN IMMUNOGLOBULIN (IMMUNOGLOBULIN HUMAN NORMAL) [Suspect]
     Active Substance: HUMAN IMMUNOGLOBULIN G
     Dosage: UNK
     Route: 064
     Dates: start: 20151129, end: 201511
  12. COLCHICINE. [Concomitant]
     Active Substance: COLCHICINE
     Dosage: UNK
     Route: 064
     Dates: start: 20151128, end: 201511
  13. COLCHICINE. [Concomitant]
     Active Substance: COLCHICINE
     Dosage: UNK
     Route: 064
     Dates: start: 2015, end: 20151117
  14. ETANERCEPT [Concomitant]
     Active Substance: ETANERCEPT
     Indication: PRODUCT USED FOR UNKNOWN INDICATION
     Dosage: UNK
     Route: 065

REACTIONS (9)
  - Hypocalcaemia [Recovered/Resolved]
  - Neonatal infection [Unknown]
  - Bradycardia foetal [Recovered/Resolved]
  - Premature baby [Unknown]
  - Pyrexia [Recovering/Resolving]
  - Gastrointestinal disorder [Recovering/Resolving]
  - Hepatosplenomegaly neonatal [Recovering/Resolving]
  - Thrombocytopenia neonatal [Recovering/Resolving]
  - Foetal exposure during pregnancy [Recovered/Resolved]

NARRATIVE: CASE EVENT DATE: 2015
